FAERS Safety Report 4976043-6 (Version None)
Quarter: 2006Q2

REPORT INFORMATION
  Report Type: 
  Country: None (occurrence: None)
  Receive Date: 20060418
  Receipt Date: 20051003
  Transmission Date: 20061013
  Serious: Yes (Hospitalization)
  Sender: FDA-Public Use
  Company Number: US-MERCK-0510USA02778

PATIENT
  Age: 64 Year
  Sex: Male
  Weight: 127 kg

DRUGS (1)
  1. VIOXX [Suspect]
     Indication: PAIN
     Route: 048
     Dates: start: 20010101, end: 20040930

REACTIONS (12)
  - ANGIOPATHY [None]
  - ARTERIAL DISORDER [None]
  - ARTHROPATHY [None]
  - CEREBRAL DISORDER [None]
  - CHEST PAIN [None]
  - CORONARY ARTERY DISEASE [None]
  - GASTROINTESTINAL DISORDER [None]
  - HYPERTENSION [None]
  - INJURY [None]
  - LUNG DISORDER [None]
  - RENAL DISORDER [None]
  - TRIPLE VESSEL BYPASS GRAFT [None]
